FAERS Safety Report 17756451 (Version 1)
Quarter: 2020Q2

REPORT INFORMATION
  Report Type: Spontaneous
  Country: FR (occurrence: FR)
  Receive Date: 20200507
  Receipt Date: 20200507
  Transmission Date: 20200714
  Serious: Yes (Hospitalization)
  Sender: FDA-Public Use
  Company Number: FR-CADILA HEALTHCARE LIMITED-FR-ZYDUS-022496

PATIENT

DRUGS (5)
  1. LEVOTHYROX [Concomitant]
     Active Substance: LEVOTHYROXINE
     Indication: HYPOTHYROIDISM
     Dosage: 50 MICROGRAM,BREAKABLE TABLET,(INTERVAL :1 DAYS)
  2. AMLODIPINE [Concomitant]
     Active Substance: AMLODIPINE BESYLATE
     Indication: HYPERTENSION
     Dosage: 5 MILLIGRAM,(INTERVAL :1 DAYS)
  3. ESCITALOPRAM [Suspect]
     Active Substance: ESCITALOPRAM OXALATE
     Indication: ANXIETY
     Dosage: 10 MILLIGRAM,(INTERVAL :1 DAYS)
     Dates: start: 2016
  4. KARDEGIC [Suspect]
     Active Substance: ASPIRIN DL-LYSINE
     Indication: ANTIPLATELET THERAPY
     Dosage: 75 MILLIGRAM,(INTERVAL :1 DAYS)
     Route: 048
     Dates: start: 2015, end: 20171130
  5. LEVOCETIRIZINE DIHYDROCHLORIDE. [Concomitant]
     Active Substance: LEVOCETIRIZINE DIHYDROCHLORIDE
     Indication: RHINITIS
     Dosage: 5 MILLIGRAM,(INTERVAL :1 DAYS)

REACTIONS (1)
  - Intracranial haematoma [Recovered/Resolved]

NARRATIVE: CASE EVENT DATE: 20171130
